FAERS Safety Report 7488919-9 (Version None)
Quarter: 2011Q2

REPORT INFORMATION
  Report Type: 
  Country: None (occurrence: None)
  Receive Date: 20110518
  Receipt Date: 20110507
  Transmission Date: 20111010
  Serious: Yes (Other)
  Sender: FDA-Public Use
  Company Number: DE-UCBSA-032437

PATIENT
  Age: 4 Year

DRUGS (3)
  1. LACOSAMIDE [Suspect]
     Route: 048
  2. LACOSAMIDE [Suspect]
     Route: 048
  3. LACOSAMIDE [Suspect]

REACTIONS (4)
  - SOMNOLENCE [None]
  - STATUS EPILEPTICUS [None]
  - POLLAKIURIA [None]
  - CONVULSION [None]
